FAERS Safety Report 19734422 (Version 1)
Quarter: 2021Q3

REPORT INFORMATION
  Report Type: Spontaneous
  Country: US (occurrence: US)
  Receive Date: 20210824
  Receipt Date: 20210824
  Transmission Date: 20211014
  Serious: No
  Sender: FDA-Public Use
  Company Number: US-AUROBINDO-AUR-APL-2021-026172

PATIENT
  Sex: Female

DRUGS (1)
  1. NORGESTIMATE+ETHINYL ESTRADIOL TABLET [Suspect]
     Active Substance: ETHINYL ESTRADIOL\NORGESTIMATE
     Indication: CONTRACEPTION
     Dosage: 1 DOSAGE FORM, DAILY
     Route: 048

REACTIONS (4)
  - Feeling abnormal [Recovering/Resolving]
  - Hypoaesthesia [Recovering/Resolving]
  - Breast cyst [Recovering/Resolving]
  - Breast discomfort [Recovering/Resolving]

NARRATIVE: CASE EVENT DATE: 20210614
